FAERS Safety Report 24630342 (Version 3)
Quarter: 2024Q4

REPORT INFORMATION
  Report Type: Report from Study
  Country: CN (occurrence: CN)
  Receive Date: 20241118
  Receipt Date: 20241219
  Transmission Date: 20250115
  Serious: Yes (Hospitalization, Other)
  Sender: ROCHE
  Company Number: CN-ROCHE-2014439

PATIENT
  Age: 77 Year
  Sex: Female

DRUGS (1)
  1. TARCEVA [Suspect]
     Active Substance: ERLOTINIB HYDROCHLORIDE
     Indication: Non-small cell lung cancer
     Route: 048
     Dates: start: 20170506

REACTIONS (18)
  - Brain oedema [Unknown]
  - Dizziness [Unknown]
  - Nasopharyngitis [Unknown]
  - Movement disorder [Unknown]
  - Skin erosion [Unknown]
  - Pain in extremity [Unknown]
  - Discomfort [Unknown]
  - Skin ulcer [Unknown]
  - COVID-19 [Unknown]
  - Pruritus [Unknown]
  - Asthenia [Unknown]
  - Bedridden [Unknown]
  - General physical condition abnormal [Unknown]
  - Skin ulcer [Unknown]
  - Gait inability [Unknown]
  - Loss of personal independence in daily activities [Unknown]
  - Ill-defined disorder [Unknown]
  - Muscular weakness [Unknown]
